FAERS Safety Report 4290484-4 (Version None)
Quarter: 2004Q1

REPORT INFORMATION
  Report Type: 
  Country: None (occurrence: None)
  Receive Date: 20040126
  Receipt Date: 20030909
  Transmission Date: 20041129
  Serious: No
  Sender: FDA-Public Use
  Company Number: USA030433804

PATIENT
  Age: 58 Year
  Sex: Female
  Weight: 58 kg

DRUGS (9)
  1. FORTEO [Suspect]
     Indication: OSTEOPOROSIS
     Dosage: 20 UG/6 WEEK
     Dates: start: 20030408
  2. PREVACID [Concomitant]
  3. TYLENOL [Concomitant]
  4. VIOXX [Concomitant]
  5. CITRACAL (CALCIUM CITRATE) [Concomitant]
  6. FLEXERIL [Concomitant]
  7. MYOFLEXIN (CHLORZOXAZONE) [Concomitant]
  8. AMBEIN (ZOLPIDEM TARTRATE) [Concomitant]
  9. ATIVAN [Concomitant]

REACTIONS (10)
  - BLOOD PRESSURE DECREASED [None]
  - BONE PAIN [None]
  - DECREASED APPETITE [None]
  - DIZZINESS [None]
  - DYSPEPSIA [None]
  - HEADACHE [None]
  - ILL-DEFINED DISORDER [None]
  - INJECTION SITE ERYTHEMA [None]
  - MUSCLE CRAMP [None]
  - NAUSEA [None]
